FAERS Safety Report 15895679 (Version 1)
Quarter: 2019Q1

REPORT INFORMATION
  Report Type: Spontaneous
  Country: US (occurrence: US)
  Receive Date: 20190109
  Receipt Date: 20190109
  Transmission Date: 20190417
  Serious: Yes (Disabling, Other)
  Sender: FDA-Public Use
  Company Number: None

PATIENT
  Age: 70 Year
  Sex: Male
  Weight: 88.45 kg

DRUGS (8)
  1. TRIAMCINOLONE ACETOMIDE [Concomitant]
  2. PHENYTOIN NA 100MG SA CAP [Suspect]
     Active Substance: PHENYTOIN SODIUM
     Indication: SEIZURE
     Dosage: ?          QUANTITY:100 MG MILLIGRAM(S);?
     Route: 048
     Dates: start: 1976
  3. PHENYTOIN. [Concomitant]
     Active Substance: PHENYTOIN
  4. OMEPRAZOLE. [Concomitant]
     Active Substance: OMEPRAZOLE
  5. VITAMIN D [Concomitant]
     Active Substance: CHOLECALCIFEROL
  6. FISH OIL [Concomitant]
     Active Substance: FISH OIL
  7. METOPROLOL TARTRATE. [Concomitant]
     Active Substance: METOPROLOL TARTRATE
  8. VITAMIN D [Concomitant]
     Active Substance: CHOLECALCIFEROL

REACTIONS (7)
  - Dental restoration failure [None]
  - Gingival disorder [None]
  - Dental caries [None]
  - Tooth fracture [None]
  - Vitamin D decreased [None]
  - Bone loss [None]
  - Tooth loss [None]
